FAERS Safety Report 9764581 (Version 1)
Quarter: 2013Q4

REPORT INFORMATION
  Report Type: Spontaneous
  Country: BR (occurrence: BR)
  Receive Date: 20131217
  Receipt Date: 20131217
  Transmission Date: 20140711
  Serious: Yes (Other)
  Sender: FDA-Public Use
  Company Number: BR-RANBAXY-2013R5-76013

PATIENT
  Age: 51 Year
  Sex: Female
  Weight: 60 kg

DRUGS (2)
  1. DOXYCYCLINE [Suspect]
     Indication: EYE INFECTION
     Dosage: 200 MG, BID
     Route: 048
     Dates: start: 20131201, end: 20131201
  2. DOXYCYCLINE [Suspect]
     Indication: EYE INFECTION
     Dosage: 100 MG, BID
     Route: 048
     Dates: start: 20131202, end: 20131202

REACTIONS (13)
  - Abdominal pain upper [Not Recovered/Not Resolved]
  - Suffocation feeling [Not Recovered/Not Resolved]
  - Feeling hot [Not Recovered/Not Resolved]
  - Paraesthesia [Not Recovered/Not Resolved]
  - Dizziness [Not Recovered/Not Resolved]
  - Vulvovaginal pain [Not Recovered/Not Resolved]
  - Vomiting [Not Recovered/Not Resolved]
  - Diarrhoea [Not Recovered/Not Resolved]
  - Tremor [Not Recovered/Not Resolved]
  - Tachycardia [Not Recovered/Not Resolved]
  - Dyspnoea [Not Recovered/Not Resolved]
  - Tremor [Not Recovered/Not Resolved]
  - Tremor [Not Recovered/Not Resolved]
